FAERS Safety Report 7909031-8 (Version None)
Quarter: 2011Q4

REPORT INFORMATION
  Report Type: 
  Country: None (occurrence: None)
  Receive Date: 20111111
  Receipt Date: 20111101
  Transmission Date: 20120403
  Serious: Yes (Hospitalization, Other)
  Sender: FDA-Public Use
  Company Number: FR-PFIZER INC-2011258786

PATIENT
  Age: 27 Year
  Sex: Female

DRUGS (2)
  1. EFFEXOR [Suspect]
     Dosage: 4500 MG, UNK
  2. PROZAC [Concomitant]
     Dosage: 1280 MG, UNK

REACTIONS (5)
  - TOXICITY TO VARIOUS AGENTS [None]
  - SEROTONIN SYNDROME [None]
  - CARDIOGENIC SHOCK [None]
  - STATUS EPILEPTICUS [None]
  - INTENTIONAL OVERDOSE [None]
